FAERS Safety Report 7022139-7 (Version None)
Quarter: 2010Q3

REPORT INFORMATION
  Report Type: 
  Country: None (occurrence: None)
  Receive Date: 20100928
  Receipt Date: 20100920
  Transmission Date: 20110219
  Serious: Yes (Death)
  Sender: FDA-Public Use
  Company Number: 2010MA002728

PATIENT
  Age: 66 Year
  Sex: Male

DRUGS (2)
  1. TRAMADOL HYDROCHLORIDE [Suspect]
     Indication: PRODUCT USED FOR UNKNOWN INDICATION
  2. FENTANYL [Suspect]
     Indication: ANALGESIC THERAPY
     Dosage: 75 MCG/HR; TDER
     Route: 062

REACTIONS (3)
  - DRUG TOXICITY [None]
  - EMPHYSEMA [None]
  - MYOCARDIAL ISCHAEMIA [None]
